FAERS Safety Report 7156433-6 (Version None)
Quarter: 2010Q4

REPORT INFORMATION
  Report Type: 
  Country: None (occurrence: None)
  Receive Date: 20101214
  Receipt Date: 20101208
  Transmission Date: 20110411
  Serious: Yes (Other)
  Sender: FDA-Public Use
  Company Number: IT-VALEANT-2010VX002084

PATIENT
  Age: 73 Year
  Sex: Male

DRUGS (1)
  1. TIMOLOL MALEATE [Suspect]
     Indication: GLAUCOMA
     Route: 047
     Dates: start: 20100201, end: 20100201

REACTIONS (2)
  - HEART RATE INCREASED [None]
  - RESPIRATORY FAILURE [None]
